FAERS Safety Report 17905206 (Version 1)
Quarter: 2020Q2

REPORT INFORMATION
  Report Type: Spontaneous
  Country: US (occurrence: US)
  Receive Date: 20200616
  Receipt Date: 20200616
  Transmission Date: 20200714
  Serious: No
  Sender: FDA-Public Use
  Company Number: US-ROCHE-2544986

PATIENT

DRUGS (2)
  1. CORTEF [Concomitant]
     Active Substance: HYDROCORTISONE
     Dosage: 2 TO 3 TABLET EVERY MORNING?30 MG IN AM AND 10 MG AT 1-2 PM
     Route: 048
  2. ACTEMRA [Suspect]
     Active Substance: TOCILIZUMAB
     Indication: PRODUCT USED FOR UNKNOWN INDICATION
     Route: 065

REACTIONS (1)
  - Drug hypersensitivity [Unknown]

NARRATIVE: CASE EVENT DATE: 20150210
